FAERS Safety Report 20148116 (Version 5)
Quarter: 2022Q1

REPORT INFORMATION
  Report Type: Report from Study
  Country: US (occurrence: US)
  Receive Date: 20211204
  Receipt Date: 20220316
  Transmission Date: 20220423
  Serious: No
  Sender: FDA-Public Use
  Company Number: US-NOVARTISTESTPH-NVSC2021US276199

PATIENT
  Sex: Male

DRUGS (1)
  1. ENTRESTO [Suspect]
     Active Substance: SACUBITRIL\VALSARTAN
     Indication: Product used for unknown indication
     Dosage: UNK UNK, BID
     Route: 048
     Dates: start: 202110

REACTIONS (7)
  - Dysuria [Recovering/Resolving]
  - Penile pain [Recovering/Resolving]
  - Urinary tract infection [Recovering/Resolving]
  - Weight decreased [Unknown]
  - Blood pressure decreased [Unknown]
  - Urine output increased [Unknown]
  - Renal disorder [Unknown]
